FAERS Safety Report 5023427-6 (Version None)
Quarter: 2006Q2

REPORT INFORMATION
  Report Type: 
  Country: None (occurrence: None)
  Receive Date: 20060606
  Receipt Date: 20060523
  Transmission Date: 20061013
  Serious: Yes (Other)
  Sender: FDA-Public Use
  Company Number: GXKR2006RO02424

PATIENT
  Age: 82 Year
  Sex: Female

DRUGS (3)
  1. AMIODARONE (NGX) (AMIODARONE) [Suspect]
     Dosage: SEE IMAGE
     Dates: start: 20030101, end: 20040101
  2. AMIODARONE (NGX) (AMIODARONE) [Suspect]
     Dosage: SEE IMAGE
     Dates: start: 20040101, end: 20050801
  3. BETA BLOCKING AGENTS (NO INGREDIENTS/SUBSTANCES) [Concomitant]

REACTIONS (6)
  - KERATOPATHY [None]
  - MACULOPATHY [None]
  - OCULAR TOXICITY [None]
  - PHOTOPHOBIA [None]
  - VISUAL ACUITY REDUCED [None]
  - VISUAL DISTURBANCE [None]
